FAERS Safety Report 11115066 (Version 2)
Quarter: 2015Q3

REPORT INFORMATION
  Report Type: Spontaneous
  Country: US (occurrence: US)
  Receive Date: 20150515
  Receipt Date: 20150723
  Transmission Date: 20151125
  Serious: Yes (Death, Hospitalization)
  Sender: FDA-Public Use
  Company Number: US-JNJFOC-20150508309

PATIENT
  Sex: Male
  Weight: 19.05 kg

DRUGS (2)
  1. CHILDRENS TYLENOL [Suspect]
     Active Substance: ACETAMINOPHEN
     Indication: INFLUENZA LIKE ILLNESS
     Dosage: TOTALLY INGESTED 20-25ML/DAY ( 1 TEA SPOON (5 ML), EVERY 4-6 HOURS)
     Route: 048
     Dates: start: 20050218, end: 20050224
  2. MOTRIN [Concomitant]
     Active Substance: IBUPROFEN
     Indication: PRODUCT USED FOR UNKNOWN INDICATION
     Route: 065

REACTIONS (30)
  - Hepatic failure [Fatal]
  - Autoimmune hepatitis [None]
  - Post procedural bile leak [None]
  - Anastomotic stenosis [None]
  - Chronic hepatic failure [None]
  - Left ventricular hypertrophy [None]
  - Exsanguination [None]
  - Escherichia bacteraemia [None]
  - Biliary fistula [None]
  - Liver transplant rejection [Fatal]
  - Erosive oesophagitis [None]
  - Disseminated intravascular coagulation [None]
  - Liver transplant [None]
  - Pleural effusion [None]
  - Eosinophilic oesophagitis [None]
  - Death [Fatal]
  - Coagulopathy [Fatal]
  - Hepatic necrosis [None]
  - Hepatic encephalopathy [None]
  - Periportal oedema [None]
  - Large intestinal haemorrhage [None]
  - Klebsiella bacteraemia [None]
  - Cholangitis [None]
  - Oesophageal haemorrhage [None]
  - Nervous system disorder [None]
  - Hepatic cirrhosis [None]
  - Gastric haemorrhage [None]
  - Hyponatraemia [None]
  - Rectal haemorrhage [None]
  - Small intestinal haemorrhage [None]

NARRATIVE: CASE EVENT DATE: 2005
